FAERS Safety Report 8121479-8 (Version None)
Quarter: 2012Q1

REPORT INFORMATION
  Report Type: 
  Country: None (occurrence: None)
  Receive Date: 20120203
  Receipt Date: 20111221
  Transmission Date: 20120608
  Serious: Yes (Hospitalization)
  Sender: FDA-Public Use
  Company Number: 2012SP001711

PATIENT
  Age: 80 Year
  Sex: Female

DRUGS (1)
  1. INTERFERON ALFA-2B RECOMBINANT (INTERFERON ALFA-2B) [Suspect]
     Indication: MALIGNANT NEOPLASM OF CONJUNCTIVA
     Dosage: TOP; TOP
     Route: 061

REACTIONS (1)
  - MALIGNANT NEOPLASM OF CONJUNCTIVA [None]
